FAERS Safety Report 11284993 (Version 1)
Quarter: 2015Q3

REPORT INFORMATION
  Report Type: Spontaneous
  Country: US (occurrence: US)
  Receive Date: 20150720
  Receipt Date: 20150720
  Transmission Date: 20151125
  Serious: No
  Sender: FDA-Public Use
  Company Number: US-TAKEDA-2015TUS005802

PATIENT
  Age: 24 Year
  Sex: Male

DRUGS (5)
  1. VITAMIN D3 [Concomitant]
     Active Substance: CHOLECALCIFEROL
     Indication: SUPPLEMENTATION THERAPY
     Dosage: 5000 IU, QD
     Route: 048
  2. ENTOCORT EC [Concomitant]
     Active Substance: BUDESONIDE
     Indication: GASTROINTESTINAL DISORDER
     Dosage: 3 MG, QD
     Route: 048
  3. VITAMIN B 12 SHOTS [Concomitant]
     Indication: SUPPLEMENTATION THERAPY
     Dosage: 1000 MG/ML, MONTHLY
     Route: 050
  4. ENTYVIO [Suspect]
     Active Substance: VEDOLIZUMAB
     Indication: CROHN^S DISEASE
     Dosage: 300 MG, UNK
     Route: 042
     Dates: start: 20150317
  5. PENTASA [Concomitant]
     Active Substance: MESALAMINE
     Dosage: 500 MG, QD
     Route: 048

REACTIONS (2)
  - Incorrect drug administration duration [Unknown]
  - Headache [Not Recovered/Not Resolved]

NARRATIVE: CASE EVENT DATE: 201503
